FAERS Safety Report 4823449-1 (Version None)
Quarter: 2005Q4

REPORT INFORMATION
  Report Type: 
  Country: None (occurrence: None)
  Receive Date: 20051107
  Receipt Date: 20051023
  Transmission Date: 20060501
  Serious: Yes (Other)
  Sender: FDA-Public Use
  Company Number: 2005146604

PATIENT
  Age: 16 Year
  Sex: Male
  Weight: 54.4316 kg

DRUGS (1)
  1. DRAMAMINE [Suspect]
     Indication: EUPHORIC MOOD
     Dosage: 9 TABS ONCE, ORAL
     Route: 048
     Dates: start: 20051023, end: 20051023

REACTIONS (1)
  - INTENTIONAL OVERDOSE [None]
